FAERS Safety Report 25715968 (Version 1)
Quarter: 2025Q3

REPORT INFORMATION
  Report Type: Spontaneous
  Country: US (occurrence: None)
  Receive Date: 20250821
  Receipt Date: 20250821
  Transmission Date: 20251021
  Serious: Yes (Hospitalization)
  Sender: FDA-CTU
  Company Number: None

PATIENT
  Age: 52 Year
  Sex: Female
  Weight: 65.25 kg

DRUGS (8)
  1. LEXAPRO [Suspect]
     Active Substance: ESCITALOPRAM OXALATE
     Indication: Depression
  2. Libre sensor [Concomitant]
  3. glucose monitor system [Concomitant]
  4. Lamitcal [Concomitant]
  5. SEROQUEL [Concomitant]
     Active Substance: QUETIAPINE FUMARATE
  6. ZOLOFT [Concomitant]
     Active Substance: SERTRALINE HYDROCHLORIDE
  7. METFORMIN [Concomitant]
     Active Substance: METFORMIN HYDROCHLORIDE
  8. VITAMINS [Concomitant]
     Active Substance: VITAMINS

REACTIONS (3)
  - Emotional disorder [None]
  - Paranoia [None]
  - Suicidal ideation [None]

NARRATIVE: CASE EVENT DATE: 20250615
